FAERS Safety Report 24566014 (Version 3)
Quarter: 2025Q3

REPORT INFORMATION
  Report Type: Report from Study
  Country: IN (occurrence: IN)
  Receive Date: 20241030
  Receipt Date: 20250808
  Transmission Date: 20251020
  Serious: Yes (Other)
  Sender: INCYTE
  Company Number: IN-002147023-PHHY2017IN022162

PATIENT
  Age: 52 Year

DRUGS (7)
  1. RUXOLITINIB [Suspect]
     Active Substance: RUXOLITINIB
     Indication: Primary myelofibrosis
     Dosage: 10 MG, BID
  2. RUXOLITINIB [Suspect]
     Active Substance: RUXOLITINIB
     Indication: Polycythaemia vera
     Dosage: 5 MG, BID
  3. RUXOLITINIB [Suspect]
     Active Substance: RUXOLITINIB
     Indication: Myelofibrosis
     Dosage: 10 MG, BID
  4. RUXOLITINIB [Suspect]
     Active Substance: RUXOLITINIB
     Dosage: 5 MG, BID
  5. RUXOLITINIB [Suspect]
     Active Substance: RUXOLITINIB
     Dosage: 20 MG, BID
  6. RUXOLITINIB [Suspect]
     Active Substance: RUXOLITINIB
     Dosage: 15 MG, BID
  7. RUXOLITINIB [Suspect]
     Active Substance: RUXOLITINIB
     Dosage: 5 MG, QD (DOSE REDUCED FROM JAKAVI 15 MG BD TO JAKAVI 5 MG OD)

REACTIONS (16)
  - Ear infection [Unknown]
  - Weight decreased [Unknown]
  - Bone pain [Unknown]
  - Cough [Unknown]
  - Platelet count decreased [Not Recovered/Not Resolved]
  - Polycythaemia vera [Unknown]
  - Malignant neoplasm progression [Unknown]
  - Primary myelofibrosis [Unknown]
  - Fatigue [Unknown]
  - Pyrexia [Unknown]
  - Dengue fever [Unknown]
  - Splenomegaly [Unknown]
  - Pallor [Unknown]
  - Wrong technique in product usage process [Unknown]
  - Tuberculosis [Unknown]
  - Asthenia [Unknown]
